FAERS Safety Report 15254419 (Version 1)
Quarter: 2018Q3

REPORT INFORMATION
  Report Type: Spontaneous
  Country: US (occurrence: US)
  Receive Date: 20180717
  Receipt Date: 20180717
  Transmission Date: 20181010
  Serious: Yes (Hospitalization)
  Sender: FDA-Public Use
  Company Number: None

PATIENT
  Age: 59 Year
  Sex: Male

DRUGS (13)
  1. HCTZ [Concomitant]
     Active Substance: HYDROCHLOROTHIAZIDE
  2. PREDNSIONE [Concomitant]
  3. MORPHINE [Concomitant]
     Active Substance: MORPHINE
  4. NYSTATIN. [Concomitant]
     Active Substance: NYSTATIN
  5. CARDVEDILOL [Concomitant]
  6. POT CHLORIDE [Concomitant]
     Active Substance: POTASSIUM CHLORIDE
  7. BUPROPION. [Concomitant]
     Active Substance: BUPROPION
  8. SPIRONOLACT [Concomitant]
     Active Substance: SPIRONOLACTONE
  9. ZYTIGA [Suspect]
     Active Substance: ABIRATERONE ACETATE
     Indication: PROSTATE CANCER
     Route: 048
     Dates: start: 20180413
  10. ATORVASTAIN [Suspect]
     Active Substance: ATORVASTATIN
  11. ELIQUIS [Concomitant]
     Active Substance: APIXABAN
  12. TAMSULOSIN [Concomitant]
     Active Substance: TAMSULOSIN
  13. CALC ACETATE [Suspect]
     Active Substance: CALCIUM ACETATE

REACTIONS (1)
  - Hospitalisation [None]
